FAERS Safety Report 8071673-X (Version None)
Quarter: 2012Q1

REPORT INFORMATION
  Report Type: 
  Country: None (occurrence: None)
  Receive Date: 20120125
  Receipt Date: 20120110
  Transmission Date: 20120608
  Serious: Yes (Hospitalization)
  Sender: FDA-Public Use
  Company Number: US-WATSON-2012-00359

PATIENT
  Sex: Female
  Weight: 46.712 kg

DRUGS (7)
  1. FENTANYL-100 [Suspect]
     Dosage: 1 PATCH EVERY 3 DAYS FOR 11 MONTHS TOTAL
     Route: 062
     Dates: start: 20110101
  2. SOMA [Concomitant]
     Indication: PAIN
     Dosage: UNK
     Route: 048
  3. VERAPAMIL [Concomitant]
     Indication: CARDIAC DISORDER
     Dosage: UNK
     Route: 048
  4. AMBIEN [Concomitant]
     Indication: INSOMNIA
     Dosage: AS NEEDED
     Route: 048
  5. FENTANYL-100 [Suspect]
     Indication: PAIN
     Dosage: 1 PATCH EVERY 3 DAYS FOR 11 MONTHS TOTAL
     Route: 062
     Dates: end: 20111117
  6. OXYCODONE HCL [Concomitant]
     Indication: PAIN
     Dosage: UNK
     Route: 048
  7. B12-VITAMIIN [Concomitant]
     Indication: SUPPLEMENTATION THERAPY
     Dosage: UNK
     Route: 048

REACTIONS (8)
  - PSYCHOTIC DISORDER [None]
  - HICCUPS [None]
  - DRUG WITHDRAWAL SYNDROME [None]
  - AMNESIA [None]
  - CONVULSION [None]
  - CEREBRAL DISORDER [None]
  - DRUG HYPERSENSITIVITY [None]
  - ALTERED STATE OF CONSCIOUSNESS [None]
